FAERS Safety Report 5073359-2 (Version None)
Quarter: 2006Q3

REPORT INFORMATION
  Report Type: 
  Country: None (occurrence: None)
  Receive Date: 20060803
  Receipt Date: 20060719
  Transmission Date: 20061208
  Serious: Yes (Hospitalization)
  Sender: FDA-Public Use
  Company Number: US200607000377

PATIENT
  Age: 10 Year
  Sex: Male
  Weight: 30.8 kg

DRUGS (4)
  1. STRATTERA [Suspect]
     Indication: ATTENTION DEFICIT/HYPERACTIVITY DISORDER
     Dates: start: 20051005, end: 20060501
  2. AXID (NIZATIDINE UNKNOWN FORMULATION) [Concomitant]
  3. PREVACID [Concomitant]
  4. INFLUENZA VIRUS VACCINE (INFLUENZA VIRUS VACCINE POLYVALENT) [Concomitant]

REACTIONS (9)
  - ABDOMINAL PAIN [None]
  - ALANINE AMINOTRANSFERASE INCREASED [None]
  - ASPARTATE AMINOTRANSFERASE INCREASED [None]
  - INFECTIOUS MONONUCLEOSIS [None]
  - LETHARGY [None]
  - NAUSEA [None]
  - PALLOR [None]
  - PHARYNGITIS STREPTOCOCCAL [None]
  - VOMITING [None]
